FAERS Safety Report 26056092 (Version 2)
Quarter: 2025Q4

REPORT INFORMATION
  Report Type: Report from Study
  Country: PK (occurrence: PK)
  Receive Date: 20251118
  Receipt Date: 20251124
  Transmission Date: 20260118
  Serious: Yes (Other)
  Sender: ROCHE
  Company Number: PK-ROCHE-10000435876

PATIENT
  Age: 38 Year
  Sex: Male

DRUGS (7)
  1. RITUXIMAB [Suspect]
     Active Substance: RITUXIMAB
     Indication: Rheumatoid arthritis
     Dosage: HE RECEIVED TWO CYCLES OF RISTOVA 1000 MG BY?16/11/2024.
     Route: 042
     Dates: start: 20241102
  2. RITUXIMAB [Suspect]
     Active Substance: RITUXIMAB
     Route: 042
     Dates: start: 20250531
  3. TABLET PANADOL 500 MG [Concomitant]
     Route: 048
     Dates: start: 20250531
  4. INJECTION SOLU-MEDROL 125 MG [Concomitant]
     Route: 042
     Dates: start: 20250531
  5. SODIUM CHLORIDE [Concomitant]
     Active Substance: SODIUM CHLORIDE
     Dates: start: 20250531
  6. INJECTION AVIL 45.4 MG/2 ML [Concomitant]
     Dosage: STRENGTH 45.4 MG/ 2ML
     Route: 042
     Dates: start: 20250531
  7. SODIUM CHLORIDE [Concomitant]
     Active Substance: SODIUM CHLORIDE
     Dates: start: 20250531

REACTIONS (1)
  - Granulomatosis with polyangiitis [Unknown]

NARRATIVE: CASE EVENT DATE: 20251101
